FAERS Safety Report 8262342-1 (Version None)
Quarter: 2012Q2

REPORT INFORMATION
  Report Type: 
  Country: None (occurrence: None)
  Receive Date: 20120405
  Receipt Date: 20120328
  Transmission Date: 20120825
  Serious: Yes (Hospitalization)
  Sender: FDA-Public Use
  Company Number: ES-JNJFOC-20120109035

PATIENT
  Sex: Male
  Weight: 72 kg

DRUGS (8)
  1. ABIRATERONE ACETATE [Suspect]
     Route: 048
  2. INSULIN [Concomitant]
     Indication: ILL-DEFINED DISORDER
  3. ACETAMINOPHEN [Concomitant]
     Indication: ILL-DEFINED DISORDER
     Route: 065
  4. ABIRATERONE ACETATE [Suspect]
     Indication: PROSTATE CANCER METASTATIC
     Route: 048
     Dates: start: 20111014, end: 20120120
  5. LEUPROLIDE ACETATE [Concomitant]
     Indication: HORMONE THERAPY
     Route: 065
     Dates: start: 20050302
  6. PREDNISONE TAB [Suspect]
     Indication: PROSTATE CANCER METASTATIC
     Route: 048
     Dates: start: 20111014, end: 20120120
  7. OMEPRAZOLE [Concomitant]
     Indication: ILL-DEFINED DISORDER
  8. IBUPROFEN [Concomitant]
     Indication: ILL-DEFINED DISORDER

REACTIONS (2)
  - ASTHENIA [None]
  - ATRIOVENTRICULAR BLOCK [None]
